FAERS Safety Report 6366882-1 (Version None)
Quarter: 2009Q3

REPORT INFORMATION
  Report Type: 
  Country: None (occurrence: None)
  Receive Date: 20090921
  Receipt Date: 20090917
  Transmission Date: 20100115
  Serious: Yes (Other)
  Sender: FDA-Public Use
  Company Number: GR-ROXANE LABORATORIES, INC.-2009-RO-00950RO

PATIENT
  Age: 49 Year
  Sex: Female

DRUGS (3)
  1. CITALOPRAM HYDROBROMIDE [Suspect]
     Indication: DEPRESSION
     Dosage: 20 MG
  2. CLOVAZAME [Suspect]
     Indication: DEPRESSION
     Dosage: 5 MG
  3. ACYCLOVIR [Concomitant]
     Indication: HERPES ZOSTER
     Route: 048

REACTIONS (1)
  - HERPES ZOSTER [None]
